FAERS Safety Report 11283379 (Version 3)
Quarter: 2015Q3

REPORT INFORMATION
  Report Type: Spontaneous
  Country: US (occurrence: US)
  Receive Date: 20150720
  Receipt Date: 20150813
  Transmission Date: 20151125
  Serious: Yes (Death, Hospitalization)
  Sender: FDA-Public Use
  Company Number: US-ACTELION-A-US2015-120770

PATIENT
  Age: 69 Year
  Sex: Male

DRUGS (2)
  1. VELETRI [Suspect]
     Active Substance: EPOPROSTENOL
     Indication: PULMONARY HYPERTENSION
     Dosage: 5 NG/KG, PER MIN
     Route: 042
     Dates: start: 20150512, end: 20150714
  2. REVATIO [Concomitant]
     Active Substance: SILDENAFIL CITRATE

REACTIONS (3)
  - Pulmonary arterial pressure increased [Fatal]
  - Product preparation error [Unknown]
  - Right ventricular dysfunction [Fatal]

NARRATIVE: CASE EVENT DATE: 20150714
